FAERS Safety Report 23681537 (Version 1)
Quarter: 2024Q1

REPORT INFORMATION
  Report Type: Spontaneous
  Country: CN (occurrence: None)
  Receive Date: 20240328
  Receipt Date: 20240328
  Transmission Date: 20240410
  Serious: Yes (Hospitalization)
  Sender: FDA-Public Use
  Company Number: CN-ROCHE-3531785

PATIENT
  Age: 62 Year
  Sex: Female
  Weight: 50 kg

DRUGS (4)
  1. HERCEPTIN [Suspect]
     Active Substance: TRASTUZUMAB
     Indication: Breast cancer stage II
     Route: 041
     Dates: start: 20240113, end: 20240113
  2. PERJETA [Suspect]
     Active Substance: PERTUZUMAB
     Indication: Breast cancer stage II
     Route: 041
     Dates: start: 20240113, end: 20240113
  3. DOCETAXEL [Suspect]
     Active Substance: DOCETAXEL\DOCETAXEL ANHYDROUS
     Indication: Breast cancer stage II
     Route: 041
     Dates: start: 20240113, end: 20240113
  4. CARBOPLATIN [Concomitant]
     Active Substance: CARBOPLATIN
     Indication: Breast cancer stage II

REACTIONS (6)
  - Bacteraemia [Recovering/Resolving]
  - Myelosuppression [Recovering/Resolving]
  - Pyrexia [Recovering/Resolving]
  - Myalgia [Recovering/Resolving]
  - Mouth ulceration [Recovering/Resolving]
  - Gastrointestinal disorder [Unknown]

NARRATIVE: CASE EVENT DATE: 20240118
